FAERS Safety Report 16105745 (Version 1)
Quarter: 2019Q1

REPORT INFORMATION
  Report Type: Spontaneous
  Country: DE (occurrence: DE)
  Receive Date: 20190322
  Receipt Date: 20190322
  Transmission Date: 20190418
  Serious: Yes (Hospitalization)
  Sender: FDA-Public Use
  Company Number: DE-SA-2019SA072340

PATIENT
  Age: 67 Year
  Sex: Female
  Weight: 154 kg

DRUGS (4)
  1. DOCETAXEL. [Concomitant]
     Active Substance: DOCETAXEL
  2. 5-FU [FLUOROURACIL] [Concomitant]
     Active Substance: FLUOROURACIL
  3. FOLINIC ACID [Concomitant]
     Active Substance: LEUCOVORIN
  4. OXALIPLATIN. [Suspect]
     Active Substance: OXALIPLATIN
     Indication: PALLIATIVE CARE
     Route: 042

REACTIONS (3)
  - Dyspnoea [Unknown]
  - Pruritus [Unknown]
  - Rash [Unknown]

NARRATIVE: CASE EVENT DATE: 20190214
